FAERS Safety Report 4279215-1 (Version None)
Quarter: 2004Q1

REPORT INFORMATION
  Report Type: 
  Country: None (occurrence: None)
  Receive Date: 20040122
  Receipt Date: 20040112
  Transmission Date: 20041129
  Serious: Yes (Death)
  Sender: FDA-Public Use
  Company Number: 04H-062-0246959-00

PATIENT
  Age: 35 Year
  Sex: Female

DRUGS (1)
  1. SUCCINYLCHLOLINE CHLORIDE INJ [Suspect]

REACTIONS (1)
  - VICTIM OF HOMICIDE [None]
